FAERS Safety Report 9961856 (Version 1)
Quarter: 2014Q1

REPORT INFORMATION
  Report Type: Report from Study
  Country: US (occurrence: US)
  Receive Date: 20140305
  Receipt Date: 20140305
  Transmission Date: 20141002
  Serious: No
  Sender: FDA-Public Use
  Company Number: US-ABBVIE-13P-163-1113535-00

PATIENT
  Age: 28 Year
  Sex: Female
  Weight: 55.39 kg

DRUGS (3)
  1. HUMIRA [Suspect]
     Indication: CROHN^S DISEASE
     Dates: start: 201305, end: 201305
  2. HUMIRA [Suspect]
     Dates: start: 201305
  3. PREDNISONE [Concomitant]
     Indication: CROHN^S DISEASE

REACTIONS (4)
  - Injection site rash [Recovered/Resolved]
  - Injection site bruising [Recovered/Resolved]
  - Contusion [Unknown]
  - Crohn^s disease [Unknown]
